FAERS Safety Report 22007323 (Version 1)
Quarter: 2023Q1

REPORT INFORMATION
  Report Type: Spontaneous
  Country: CA (occurrence: CA)
  Receive Date: 20230218
  Receipt Date: 20230218
  Transmission Date: 20230417
  Serious: Yes (Other)
  Sender: FDA-Public Use
  Company Number: CA-SZ09-PHHY2011CA100353

PATIENT
  Age: 27 Year
  Sex: Female

DRUGS (3)
  1. QUETIAPINE FUMARATE [Interacting]
     Active Substance: QUETIAPINE FUMARATE
     Indication: Insomnia
     Dosage: 25 MG, QD (EVERY NIGHT) (TABLET)
     Route: 065
  2. RISPERIDONE [Interacting]
     Active Substance: RISPERIDONE
     Indication: Bipolar disorder
     Dosage: 25 MG, Q2W
     Route: 065
  3. LITHIUM [Interacting]
     Active Substance: LITHIUM
     Indication: Mania
     Dosage: 1050 MG, QD
     Route: 065
     Dates: start: 200912

REACTIONS (3)
  - Diabetes insipidus [Unknown]
  - Nocturia [Recovered/Resolved]
  - Drug interaction [Unknown]
